FAERS Safety Report 16799399 (Version 1)
Quarter: 2019Q3

REPORT INFORMATION
  Report Type: Spontaneous
  Country: BE (occurrence: BE)
  Receive Date: 20190912
  Receipt Date: 20190912
  Transmission Date: 20191005
  Serious: Yes (Other)
  Sender: FDA-Public Use
  Company Number: BE-PFIZER INC-2019386488

PATIENT
  Age: 45 Year
  Sex: Female

DRUGS (1)
  1. MYLOTARG [Suspect]
     Active Substance: GEMTUZUMAB OZOGAMICIN
     Indication: ACUTE MYELOID LEUKAEMIA
     Dosage: 1 DF, CYCLIC, INDUCTION D1 - D4 - D7

REACTIONS (4)
  - Aspergillus infection [Recovered/Resolved]
  - Transfusion related complication [Recovered/Resolved]
  - Hepatic enzyme increased [Recovered/Resolved]
  - Fluid retention [Recovered/Resolved]
